FAERS Safety Report 7085774-6 (Version None)
Quarter: 2010Q4

REPORT INFORMATION
  Report Type: 
  Country: None (occurrence: None)
  Receive Date: 20101105
  Receipt Date: 20101101
  Transmission Date: 20110411
  Serious: Yes (Death)
  Sender: FDA-Public Use
  Company Number: NL-CELGENEUS-114-21880-10101951

PATIENT

DRUGS (4)
  1. REVLIMID [Suspect]
     Route: 048
  2. PREDNISONE [Concomitant]
     Route: 065
  3. VALACYCLOVIR [Concomitant]
     Route: 065
  4. COTRIM [Concomitant]
     Route: 065

REACTIONS (1)
  - DISEASE PROGRESSION [None]
